FAERS Safety Report 22050433 (Version 1)
Quarter: 2023Q1

REPORT INFORMATION
  Report Type: Spontaneous
  Country: US (occurrence: None)
  Receive Date: 20230301
  Receipt Date: 20230301
  Transmission Date: 20230418
  Serious: Yes (Hospitalization)
  Sender: FDA-Public Use
  Company Number: 2023A048934

PATIENT
  Sex: Female

DRUGS (23)
  1. TEZSPIRE [Suspect]
     Active Substance: TEZEPELUMAB-EKKO
     Indication: Asthma
     Dosage: 210MG 1,91ML
     Route: 058
     Dates: start: 20230207
  2. ADVAIR DISKU AEP [Concomitant]
     Dosage: 100-50 MC
  3. ALBUTEROL [Concomitant]
     Active Substance: ALBUTEROL
  4. ATORVASTATIN [Concomitant]
     Active Substance: ATORVASTATIN
  5. AZELASTINE [Concomitant]
     Active Substance: AZELASTINE
     Dosage: 0.1%
  6. BUDESONIDE [Concomitant]
     Active Substance: BUDESONIDE
  7. DESVENLAFAXI [Concomitant]
  8. DILTIAZEM [Concomitant]
     Active Substance: DILTIAZEM
  9. DONEPEZIL [Concomitant]
     Active Substance: DONEPEZIL
  10. GABAPENTIN [Concomitant]
     Active Substance: GABAPENTIN
  11. LASIX [Concomitant]
     Active Substance: FUROSEMIDE
  12. LEVOTHYROXINE [Concomitant]
     Active Substance: LEVOTHYROXINE
  13. LOSARTAN [Concomitant]
     Active Substance: LOSARTAN
  14. METFORMIN [Concomitant]
     Active Substance: METFORMIN HYDROCHLORIDE
  15. NEXIUM [Concomitant]
     Active Substance: ESOMEPRAZOLE MAGNESIUM
  16. QUETIAPINE [Concomitant]
     Active Substance: QUETIAPINE
  17. REMERON [Concomitant]
     Active Substance: MIRTAZAPINE
  18. REPAGLINIDE [Concomitant]
     Active Substance: REPAGLINIDE
  19. SINGULAIR [Concomitant]
     Active Substance: MONTELUKAST SODIUM
  20. SOLU-MEDROL [Concomitant]
     Active Substance: METHYLPREDNISOLONE SODIUM SUCCINATE
  21. SPIRIVA [Concomitant]
     Active Substance: TIOTROPIUM BROMIDE MONOHYDRATE
     Dosage: 18 MCG
  22. SYMBICORT [Concomitant]
     Active Substance: BUDESONIDE\FORMOTEROL FUMARATE DIHYDRATE
     Dosage: 160-4.5 MCG
  23. XARELTO [Concomitant]
     Active Substance: RIVAROXABAN

REACTIONS (6)
  - Oxygen saturation decreased [Not Recovered/Not Resolved]
  - Blood pressure fluctuation [Not Recovered/Not Resolved]
  - Swelling [Not Recovered/Not Resolved]
  - Weight increased [Not Recovered/Not Resolved]
  - Contusion [Not Recovered/Not Resolved]
  - Injection site discomfort [Not Recovered/Not Resolved]
